FAERS Safety Report 13054007 (Version 1)
Quarter: 2016Q4

REPORT INFORMATION
  Report Type: Spontaneous
  Country: US (occurrence: US)
  Receive Date: 20161221
  Receipt Date: 20161221
  Transmission Date: 20170207
  Serious: No
  Sender: FDA-Public Use
  Company Number: None

PATIENT
  Age: 49 Year
  Sex: Female
  Weight: 90 kg

DRUGS (4)
  1. COREG [Concomitant]
     Active Substance: CARVEDILOL
  2. XARELTO [Suspect]
     Active Substance: RIVAROXABAN
     Indication: THROMBOSIS
     Dosage: QUANTITY:1 TABLET(S); DAILY; ORAL?
     Route: 048
  3. DIOVAN [Concomitant]
     Active Substance: VALSARTAN
  4. MAGNESIUM [Concomitant]
     Active Substance: MAGNESIUM

REACTIONS (5)
  - Sleep terror [None]
  - Abdominal distension [None]
  - Condition aggravated [None]
  - Fluid retention [None]
  - Cardiac failure congestive [None]

NARRATIVE: CASE EVENT DATE: 20161220
